FAERS Safety Report 23761776 (Version 3)
Quarter: 2025Q1

REPORT INFORMATION
  Report Type: Spontaneous
  Country: JP (occurrence: JP)
  Receive Date: 20240419
  Receipt Date: 20250327
  Transmission Date: 20250409
  Serious: Yes (Other)
  Sender: AMGEN
  Company Number: JP-AMGEN-JPNSP2024071303

PATIENT
  Sex: Male

DRUGS (3)
  1. EVENITY [Suspect]
     Active Substance: ROMOSOZUMAB-AQQG
     Indication: Osteoporosis
     Dosage: 210 MILLIGRAM, QMO ^ 12 DOSES^
     Route: 058
     Dates: start: 202304, end: 20240327
  2. EVENITY [Suspect]
     Active Substance: ROMOSOZUMAB-AQQG
  3. DENOSUMAB [Suspect]
     Active Substance: DENOSUMAB
     Indication: Osteoporosis
     Dosage: UNK, Q6MO
     Route: 065
     Dates: start: 202407

REACTIONS (8)
  - Leukopenia [Not Recovered/Not Resolved]
  - Compression fracture [Unknown]
  - Osteoporosis [Not Recovered/Not Resolved]
  - Therapeutic response unexpected [Unknown]
  - Injection site pain [Unknown]
  - Drug effect less than expected [Unknown]
  - Insomnia [Unknown]
  - Bone metabolism disorder [Unknown]

NARRATIVE: CASE EVENT DATE: 20240101
